FAERS Safety Report 6159923-8 (Version None)
Quarter: 2009Q2

REPORT INFORMATION
  Report Type: 
  Country: None (occurrence: None)
  Receive Date: 20090415
  Receipt Date: 20090331
  Transmission Date: 20091009
  Serious: Yes (Hospitalization)
  Sender: FDA-Public Use
  Company Number: 2009S1005750

PATIENT
  Age: 60 Year
  Sex: Female
  Weight: 74 kg

DRUGS (6)
  1. IBUPROFEN [Suspect]
     Indication: PAIN
     Dosage: 400 MG
     Dates: start: 20081001, end: 20090102
  2. CELEBREX [Suspect]
     Indication: PAIN
     Dosage: 100 MG;ORAL
     Route: 048
     Dates: start: 20081001, end: 20090102
  3. PANTOZOL [Concomitant]
  4. VALORON /00205402/ [Concomitant]
  5. FALITHROM [Concomitant]
  6. BISOPROLOL FUMARATE [Concomitant]

REACTIONS (2)
  - COLITIS EROSIVE [None]
  - COLITIS ULCERATIVE [None]
